FAERS Safety Report 23549831 (Version 1)
Quarter: 2024Q1

REPORT INFORMATION
  Report Type: Spontaneous
  Country: DE (occurrence: DE)
  Receive Date: 20240221
  Receipt Date: 20240221
  Transmission Date: 20240409
  Serious: Yes (Other)
  Sender: FDA-Public Use
  Company Number: DE-PEI-202400003290

PATIENT
  Age: 73 Year
  Sex: Female

DRUGS (1)
  1. PRALUENT [Suspect]
     Active Substance: ALIROCUMAB
     Indication: Hypercholesterolaemia
     Dosage: 150 MG
     Route: 065

REACTIONS (5)
  - Diplegia [Unknown]
  - Swollen tongue [Unknown]
  - Language disorder [Unknown]
  - Pharyngeal swelling [Unknown]
  - Injection site erythema [Unknown]
